FAERS Safety Report 13805273 (Version 1)
Quarter: 2017Q3

REPORT INFORMATION
  Report Type: Spontaneous
  Country: US (occurrence: US)
  Receive Date: 20170728
  Receipt Date: 20170728
  Transmission Date: 20171127
  Serious: Yes (Hospitalization)
  Sender: FDA-Public Use
  Company Number: US-ASTRAZENECA-2017SE74625

PATIENT
  Sex: Male

DRUGS (7)
  1. PLAVIX [Concomitant]
     Active Substance: CLOPIDOGREL BISULFATE
  2. VITORAN [Concomitant]
  3. METOPROLOL TARTRATE. [Suspect]
     Active Substance: METOPROLOL TARTRATE
     Route: 065
     Dates: start: 2013
  4. LIPITOR [Concomitant]
     Active Substance: ATORVASTATIN CALCIUM
     Dates: start: 2010
  5. PRAVACHOL [Concomitant]
     Active Substance: PRAVASTATIN SODIUM
  6. CRESTOR [Suspect]
     Active Substance: ROSUVASTATIN CALCIUM
     Route: 048
     Dates: start: 2009
  7. ZOCOR [Concomitant]
     Active Substance: SIMVASTATIN

REACTIONS (8)
  - Muscle spasms [Unknown]
  - Urticaria [Unknown]
  - Asthenia [Unknown]
  - Nausea [Unknown]
  - Blood cholesterol abnormal [Unknown]
  - Muscle fatigue [Unknown]
  - Critical illness [Unknown]
  - Abdominal pain upper [Unknown]
